FAERS Safety Report 21691375 (Version 3)
Quarter: 2023Q2

REPORT INFORMATION
  Report Type: Spontaneous
  Country: US (occurrence: US)
  Receive Date: 20221207
  Receipt Date: 20230606
  Transmission Date: 20230722
  Serious: No
  Sender: FDA-Public Use
  Company Number: US-002147023-NVSC2022US283014

PATIENT
  Sex: Male

DRUGS (1)
  1. XIIDRA [Suspect]
     Active Substance: LIFITEGRAST
     Indication: Product used for unknown indication
     Dosage: UNK
     Route: 065

REACTIONS (4)
  - Sebaceous gland disorder [Unknown]
  - Sinusitis [Unknown]
  - Eye irritation [Unknown]
  - Vision blurred [Unknown]
